FAERS Safety Report 22161836 (Version 1)
Quarter: 2023Q1

REPORT INFORMATION
  Report Type: Spontaneous
  Country: US (occurrence: None)
  Receive Date: 20230330
  Receipt Date: 20230330
  Transmission Date: 20230417
  Serious: Yes (Disabling)
  Sender: FDA-Public Use
  Company Number: None

PATIENT
  Age: 73 Year
  Sex: Female
  Weight: 73.48 kg

DRUGS (3)
  1. TYLENOL 8 HR ARTHRITIS PAIN [Suspect]
     Active Substance: ACETAMINOPHEN
     Indication: Back pain
     Dosage: OTHER QUANTITY : ONE TAB;?FREQUENCY : 3 TIMES A DAY;?
     Route: 048
     Dates: start: 20210501, end: 20210801
  2. LEVOTHYROXINE [Concomitant]
     Active Substance: LEVOTHYROXINE
  3. Vitamin Code Raw Calcium [Concomitant]

REACTIONS (10)
  - Muscle atrophy [None]
  - Fatigue [None]
  - Asthenia [None]
  - Myalgia [None]
  - Discomfort [None]
  - Muscle spasms [None]
  - Blood pressure increased [None]
  - Extrasystoles [None]
  - Insomnia [None]
  - Hemiparesis [None]
